FAERS Safety Report 10399322 (Version 1)
Quarter: 2014Q1

REPORT INFORMATION
  Report Type: Spontaneous
  Country: US (occurrence: None)
  Receive Date: 20130815
  Receipt Date: 20130815
  Transmission Date: 20141002
  Serious: Yes (Other)
  Sender: FDA-Public Use
  Company Number: ADR-2013-00347

PATIENT
  Age: 56 Year
  Sex: Male

DRUGS (1)
  1. BACLOFEN [Suspect]
     Dosage: 215 MCG/DAY
     Route: 037

REACTIONS (1)
  - Implant site infection [None]
